FAERS Safety Report 8933643 (Version 2)
Quarter: 2012Q4

REPORT INFORMATION
  Report Type: 
  Country: ML (occurrence: ML)
  Receive Date: 20121129
  Receipt Date: 20121218
  Transmission Date: 20130627
  Serious: Yes (Death, Hospitalization)
  Sender: FDA-Public Use
  Company Number: PHHY2012ML108744

PATIENT
  Sex: Female
  Weight: 70 kg

DRUGS (2)
  1. GLIVEC [Suspect]
     Indication: CHRONIC MYELOID LEUKAEMIA
     Dosage: 400 mg, UNK
  2. GLIVEC [Suspect]
     Dosage: 600 mg, UNK
     Route: 048
     Dates: start: 20111013, end: 20121121

REACTIONS (2)
  - Infection [Fatal]
  - Chronic myeloid leukaemia transformation [Fatal]
